FAERS Safety Report 13233154 (Version 3)
Quarter: 2017Q1

REPORT INFORMATION
  Report Type: Report from Study
  Country: FR (occurrence: FR)
  Receive Date: 20170215
  Receipt Date: 20170327
  Transmission Date: 20170428
  Serious: Yes (Death)
  Sender: FDA-Public Use
  Company Number: FR-ROCHE-1893632

PATIENT
  Age: 61 Year
  Sex: Female
  Weight: 100 kg

DRUGS (3)
  1. ATEZOLIZUMAB [Suspect]
     Active Substance: ATEZOLIZUMAB
     Indication: NON-SMALL CELL LUNG CANCER STAGE IV
     Dosage: THE MOST RECENT DOSE OF ATEZOLIZUMAB PRIOR TO THE ONSET OF THE EVENT WAS ON 30/JAN/2017.
     Route: 042
     Dates: start: 20170130
  2. CISPLATIN. [Suspect]
     Active Substance: CISPLATIN
     Indication: NON-SMALL CELL LUNG CANCER STAGE IV
     Dosage: THE MOST RECENT DOSE OF CISPLATIN PRIOR TO THE ONSET OF THE EVENT WAS 140 MG ON 30/JAN/2017.
     Route: 042
     Dates: start: 20170130
  3. PEMETREXED [Suspect]
     Active Substance: PEMETREXED
     Indication: NON-SMALL CELL LUNG CANCER STAGE IV
     Dosage: THE MOST RECENT DOSE OF PEMETREXED PRIOR TO THE ONSET OF THE EVENT WAS 985 MG ON 30/JAN/2017.
     Route: 042
     Dates: start: 20170130

REACTIONS (1)
  - Respiratory distress [Fatal]

NARRATIVE: CASE EVENT DATE: 20170211
